FAERS Safety Report 13203263 (Version 11)
Quarter: 2019Q1

REPORT INFORMATION
  Report Type: Report from Study
  Country: JP (occurrence: JP)
  Receive Date: 20170209
  Receipt Date: 20190321
  Transmission Date: 20190417
  Serious: Yes (Other)
  Sender: FDA-Public Use
  Company Number: JP-AMGEN-JPNCT2017017732

PATIENT
  Age: 69 Year
  Sex: Male
  Weight: 66.4 kg

DRUGS (24)
  1. OXALIPLATIN. [Concomitant]
     Active Substance: OXALIPLATIN
     Dosage: 140 MILLIGRAM/SQ. METER, Q2WEEKS
     Route: 041
     Dates: start: 20160104, end: 20160215
  2. 5-FU [FLUOROURACIL] [Concomitant]
     Active Substance: FLUOROURACIL
     Dosage: 4100 MG, Q2WEEKS
     Route: 041
     Dates: start: 20160104, end: 20160215
  3. 5-FU [FLUOROURACIL] [Concomitant]
     Active Substance: FLUOROURACIL
     Dosage: 2000 MG/M2, Q2WEEKS
     Route: 041
     Dates: start: 20160314, end: 20160328
  4. 5-FU [FLUOROURACIL] [Concomitant]
     Active Substance: FLUOROURACIL
     Dosage: 2000 MG/M2, Q2WK
     Route: 041
     Dates: start: 20160425, end: 20160425
  5. PANITUMUMAB [Suspect]
     Active Substance: PANITUMUMAB
     Dosage: 390 MG, Q2WK
     Route: 041
     Dates: start: 20160314, end: 20160328
  6. PANITUMUMAB [Suspect]
     Active Substance: PANITUMUMAB
     Dosage: 390 MG, Q2WK
     Route: 041
     Dates: start: 20160425, end: 20160425
  7. 5-FU [FLUOROURACIL] [Concomitant]
     Active Substance: FLUOROURACIL
     Indication: RECTAL CANCER
     Dosage: 680 MG, Q2WEEKS
     Route: 040
     Dates: start: 20151125, end: 20151209
  8. OXALIPLATIN. [Concomitant]
     Active Substance: OXALIPLATIN
     Dosage: 65 MILLIGRAM/SQ. METER, Q2WEEKS
     Route: 041
     Dates: start: 20160425, end: 20160425
  9. 5-FU [FLUOROURACIL] [Concomitant]
     Active Substance: FLUOROURACIL
     Dosage: 2000 MG/M2, Q2WEEKS
     Route: 041
     Dates: start: 20160314, end: 20160328
  10. OXALIPLATIN. [Concomitant]
     Active Substance: OXALIPLATIN
     Dosage: 50 MILLIGRAM/SQ. METER, Q2WEEKS
     Route: 041
     Dates: start: 20160523, end: 20160523
  11. CALCIUM LEVOFOLINATE [Concomitant]
     Active Substance: LEVOLEUCOVORIN CALCIUM
     Dosage: 325 MILLIGRAM, Q2WEEKS
     Route: 041
     Dates: start: 20160104, end: 20160215
  12. 5-FU [FLUOROURACIL] [Concomitant]
     Active Substance: FLUOROURACIL
     Dosage: 4100 MG, Q2WEEKS
     Route: 041
     Dates: start: 20151125, end: 20151209
  13. PANITUMUMAB [Suspect]
     Active Substance: PANITUMUMAB
     Indication: RECTAL CANCER
     Dosage: 390 MG, Q2WK
     Route: 041
     Dates: start: 20151125, end: 20151209
  14. OXALIPLATIN. [Concomitant]
     Active Substance: OXALIPLATIN
     Dosage: 65 MILLIGRAM/SQ. METER, Q2WEEKS
     Route: 041
     Dates: start: 20160314, end: 20160328
  15. CALCIUM LEVOFOLINATE [Concomitant]
     Active Substance: LEVOLEUCOVORIN CALCIUM
     Indication: RECTAL CANCER
     Dosage: 325 MILLIGRAM, Q2WEEKS
     Route: 041
     Dates: start: 20151125, end: 20151209
  16. 5-FU [FLUOROURACIL] [Concomitant]
     Active Substance: FLUOROURACIL
     Dosage: 2000 MG/M2, Q2WEEKS
     Route: 041
     Dates: start: 20160425, end: 20160425
  17. OXALIPLATIN. [Concomitant]
     Active Substance: OXALIPLATIN
     Indication: RECTAL CANCER
     Dosage: 140 MILLIGRAM, Q2WEEKS
     Route: 041
     Dates: start: 20151125, end: 20151209
  18. PANITUMUMAB [Suspect]
     Active Substance: PANITUMUMAB
     Dosage: 390 MG, Q2WK
     Route: 041
     Dates: start: 20160104, end: 20160215
  19. PANITUMUMAB [Suspect]
     Active Substance: PANITUMUMAB
     Dosage: 390 MG, Q2WK
     Route: 041
     Dates: start: 20160523, end: 20160523
  20. CALCIUM LEVOFOLINATE [Concomitant]
     Active Substance: LEVOLEUCOVORIN CALCIUM
     Dosage: 325 MILLIGRAM, Q2WEEKS
     Route: 041
     Dates: start: 20160425, end: 20160425
  21. CALCIUM LEVOFOLINATE [Concomitant]
     Active Substance: LEVOLEUCOVORIN CALCIUM
     Dosage: 325 MILLIGRAM, Q2WEEKS
     Route: 041
     Dates: start: 20160314, end: 20160328
  22. CALCIUM LEVOFOLINATE [Concomitant]
     Active Substance: LEVOLEUCOVORIN CALCIUM
     Dosage: 325 MILLIGRAM, Q2WEEKS
     Route: 041
     Dates: start: 20160523, end: 20160523
  23. 5-FU [FLUOROURACIL] [Concomitant]
     Active Substance: FLUOROURACIL
     Dosage: 4100 MG, Q2WEEKS
     Route: 041
     Dates: start: 20160104, end: 20160215
  24. 5-FU [FLUOROURACIL] [Concomitant]
     Active Substance: FLUOROURACIL
     Dosage: 1600 MG/M2, Q2WEEKS
     Route: 041
     Dates: start: 20160523, end: 20160523

REACTIONS (19)
  - Paronychia [Recovered/Resolved]
  - Malaise [Recovered/Resolved]
  - Decreased appetite [Recovered/Resolved]
  - Oedema peripheral [Recovered/Resolved]
  - Decreased appetite [Recovered/Resolved]
  - Diarrhoea [Recovered/Resolved]
  - Neutrophil count decreased [Recovered/Resolved]
  - Sciatica [Recovered/Resolved]
  - Dehydration [Recovered/Resolved]
  - Dermatitis acneiform [Recovered/Resolved]
  - Jaundice [Recovered/Resolved]
  - Palmar-plantar erythrodysaesthesia syndrome [Recovered/Resolved]
  - Constipation [Recovered/Resolved]
  - Face oedema [Recovered/Resolved]
  - White blood cell count decreased [Recovered/Resolved]
  - Paronychia [Recovered/Resolved]
  - Amylase increased [Recovered/Resolved]
  - Protein urine present [Recovered/Resolved]
  - Malaise [Recovered/Resolved]
